FAERS Safety Report 21878942 (Version 1)
Quarter: 2023Q1

REPORT INFORMATION
  Report Type: Spontaneous
  Country: US (occurrence: None)
  Receive Date: 20230117
  Receipt Date: 20230117
  Transmission Date: 20230417
  Serious: No
  Sender: FDA-Public Use
  Company Number: None

PATIENT
  Age: 55 Year
  Sex: Male
  Weight: 87.09 kg

DRUGS (15)
  1. LENALIDOMIDE [Suspect]
     Active Substance: LENALIDOMIDE
     Indication: Plasma cell myeloma
     Dosage: FREQUENCY : DAILY;?
     Route: 048
     Dates: start: 202209
  2. ALLOPURINOL [Concomitant]
     Active Substance: ALLOPURINOL
  3. ASPIRIN [Concomitant]
  4. BENADRYL [Concomitant]
  5. DARZALEX [Concomitant]
  6. DEXAMETHASONE [Concomitant]
  7. GABAPENTIN [Concomitant]
  8. LORAZEPAM [Concomitant]
  9. PEPCID [Concomitant]
     Active Substance: FAMOTIDINE
  10. SINGULAR [Concomitant]
  11. TYLENOL [Concomitant]
  12. VELCADE [Concomitant]
  13. XGEVA [Concomitant]
  14. ZOFRAN [Concomitant]
  15. ZOVIRAX [Concomitant]

REACTIONS (1)
  - Transplant [None]
